FAERS Safety Report 7201837-6 (Version None)
Quarter: 2010Q4

REPORT INFORMATION
  Report Type: 
  Country: None (occurrence: None)
  Receive Date: 20101229
  Receipt Date: 20101123
  Transmission Date: 20110411
  Serious: Yes (Hospitalization, Other)
  Sender: FDA-Public Use
  Company Number: US-BAYER-201038145NA

PATIENT
  Sex: Female
  Weight: 123 kg

DRUGS (6)
  1. YASMIN [Suspect]
     Indication: CONTRACEPTION
     Dosage: UNK
     Dates: end: 20060101
  2. YAZ [Suspect]
  3. OCELLA [Suspect]
     Indication: ACNE
  4. VITAMIN B-12 [Concomitant]
     Dosage: UNK UNK, QD
  5. MULTI-VITAMIN [Concomitant]
     Dosage: UNK UNK, QD
  6. ASPIRIN [Concomitant]
     Dosage: UNK UNK, QD

REACTIONS (5)
  - AMENORRHOEA [None]
  - CHEST PAIN [None]
  - DYSPNOEA [None]
  - PULMONARY EMBOLISM [None]
  - PULMONARY THROMBOSIS [None]
